FAERS Safety Report 10065966 (Version 1)
Quarter: 2014Q1

REPORT INFORMATION
  Report Type: Spontaneous
  Country: US (occurrence: None)
  Receive Date: 20140328
  Receipt Date: 20140328
  Transmission Date: 20141002
  Serious: No
  Sender: FDA-Public Use
  Company Number: 1000054240

PATIENT
  Age: 35 Year
  Sex: Female

DRUGS (1)
  1. LINZESS [Suspect]

REACTIONS (1)
  - Drug ineffective [None]
